FAERS Safety Report 4595907-9 (Version None)
Quarter: 2005Q1

REPORT INFORMATION
  Report Type: 
  Country: None (occurrence: None)
  Receive Date: 20050224
  Receipt Date: 20050209
  Transmission Date: 20050727
  Serious: Yes (Hospitalization)
  Sender: FDA-Public Use
  Company Number: 8008923

PATIENT
  Sex: Male

DRUGS (4)
  1. KEPPRA [Suspect]
     Indication: CONVULSION
     Dosage: 2000 MG /D PO
     Route: 048
  2. KEPPRA [Suspect]
     Indication: CONVULSION
     Dosage: 1000 MG/D PO
     Route: 048
  3. PHENYTOIN [Suspect]
     Indication: CONVULSION
     Dosage: PO
     Route: 048
  4. LAMOTRIGINE [Concomitant]

REACTIONS (2)
  - COMA [None]
  - CONDITION AGGRAVATED [None]
